FAERS Safety Report 25009137 (Version 1)
Quarter: 2025Q1

REPORT INFORMATION
  Report Type: Spontaneous
  Country: CN (occurrence: CN)
  Receive Date: 20250225
  Receipt Date: 20250225
  Transmission Date: 20250408
  Serious: Yes (Hospitalization, Other)
  Sender: PFIZER
  Company Number: CN-PFIZER INC-PV202500021876

PATIENT
  Age: 14 Year
  Sex: Male

DRUGS (4)
  1. METHOTREXATE SODIUM [Suspect]
     Active Substance: METHOTREXATE SODIUM
     Indication: Chronic myeloid leukaemia
     Dosage: 0.5 G, 1X/DAY
     Route: 041
     Dates: start: 20250115, end: 20250115
  2. METHOTREXATE SODIUM [Suspect]
     Active Substance: METHOTREXATE SODIUM
     Indication: Acute lymphocytic leukaemia
     Dosage: 7.35 G, 1X/DAY
     Route: 041
     Dates: start: 20250115, end: 20250115
  3. METHOTREXATE SODIUM [Suspect]
     Active Substance: METHOTREXATE SODIUM
     Indication: Acute lymphocytic leukaemia
     Dosage: 12 MG, 1X/DAY
     Route: 041
     Dates: start: 20250115, end: 20250115
  4. METHOTREXATE SODIUM [Suspect]
     Active Substance: METHOTREXATE SODIUM
     Indication: Chronic myeloid leukaemia

REACTIONS (2)
  - Renal impairment [Recovering/Resolving]
  - Chemotherapeutic drug level increased [Unknown]

NARRATIVE: CASE EVENT DATE: 20250117
